FAERS Safety Report 8381013-4 (Version None)
Quarter: 2012Q2

REPORT INFORMATION
  Report Type: 
  Country: None (occurrence: None)
  Receive Date: 20120523
  Receipt Date: 20120508
  Transmission Date: 20120825
  Serious: Yes (Other)
  Sender: FDA-Public Use
  Company Number: CHPA2012US009869

PATIENT
  Age: 69 Year
  Sex: Female

DRUGS (3)
  1. MILK OF MAGNESIA TAB [Concomitant]
     Dosage: 3 TSP, AT NIGHT
  2. BENEFIBER W/ WHEAT DEXTRIN [Suspect]
     Dosage: 3 TSP, TID
     Route: 048
     Dates: start: 20110601
  3. BENEFIBER W/ WHEAT DEXTRIN [Suspect]
     Indication: IRRITABLE BOWEL SYNDROME
     Dosage: 9 TSP, TID
     Route: 048

REACTIONS (4)
  - THERAPEUTIC RESPONSE UNEXPECTED [None]
  - OVERDOSE [None]
  - DRUG DEPENDENCE [None]
  - OFF LABEL USE [None]
